FAERS Safety Report 18537036 (Version 1)
Quarter: 2020Q4

REPORT INFORMATION
  Report Type: Spontaneous
  Country: US (occurrence: US)
  Receive Date: 20201123
  Receipt Date: 20201123
  Transmission Date: 20210114
  Serious: No
  Sender: FDA-Public Use
  Company Number: US-PERRIGO-20US001452

PATIENT
  Age: 75 Year
  Sex: Female
  Weight: 100.68 kg

DRUGS (3)
  1. POLYETHYLENE GLYCOL 3350. [Suspect]
     Active Substance: POLYETHYLENE GLYCOL 3350
     Dosage: 1 TSP, 1 TO 2 TIMES DAILY
     Route: 048
     Dates: start: 201911, end: 20200120
  2. POLYETHYLENE GLYCOL 3350. [Suspect]
     Active Substance: POLYETHYLENE GLYCOL 3350
     Indication: BOWEL MOVEMENT IRREGULARITY
     Dosage: 1 TSP, 1 TO 2 TIMES DAILY
     Route: 048
     Dates: start: 2019, end: 201910
  3. POLYETHYLENE GLYCOL 3350. [Suspect]
     Active Substance: POLYETHYLENE GLYCOL 3350
     Dosage: 1 TSP, 1 TO 2 TIMES DAILY
     Route: 048
     Dates: start: 20200121, end: 20200122

REACTIONS (6)
  - Stomatitis [Recovered/Resolved]
  - Diarrhoea [Recovered/Resolved]
  - Wrong technique in product usage process [Recovered/Resolved]
  - Incorrect product administration duration [Recovered/Resolved]
  - Underdose [Recovered/Resolved]
  - Inappropriate schedule of product administration [Recovered/Resolved]

NARRATIVE: CASE EVENT DATE: 2019
